FAERS Safety Report 16252583 (Version 1)
Quarter: 2019Q2

REPORT INFORMATION
  Report Type: Spontaneous
  Country: SE (occurrence: SE)
  Receive Date: 20190429
  Receipt Date: 20190429
  Transmission Date: 20190711
  Serious: Yes (Other)
  Sender: FDA-Public Use
  Company Number: SE-MYLANLABS-2019M1040059

PATIENT
  Age: 74 Year
  Sex: Male

DRUGS (2)
  1. CANDESARTAN. [Suspect]
     Active Substance: CANDESARTAN
     Indication: CARDIAC FAILURE
     Dosage: 8 MILLIGRAM, QD
     Dates: start: 20180504, end: 20180623
  2. OXASCAND [Concomitant]
     Active Substance: OXAZEPAM
     Dosage: UNK UNK, PRN
     Dates: start: 20170601

REACTIONS (2)
  - Erythema [Unknown]
  - Swelling face [Unknown]

NARRATIVE: CASE EVENT DATE: 20180622
